FAERS Safety Report 5049745-3 (Version None)
Quarter: 2006Q3

REPORT INFORMATION
  Report Type: 
  Country: None (occurrence: None)
  Receive Date: 20060707
  Receipt Date: 20060626
  Transmission Date: 20061208
  Serious: Yes (Hospitalization)
  Sender: FDA-Public Use
  Company Number: US-2006-003024

PATIENT
  Age: 41 Year
  Sex: Female

DRUGS (1)
  1. BETASERON [Suspect]
     Indication: MULTIPLE SCLEROSIS
     Dosage: 8 MIU, EVERY 2D, SUBCUTANEOUS
     Route: 058
     Dates: start: 20051013

REACTIONS (12)
  - ABDOMINAL ABSCESS [None]
  - ABDOMINAL PAIN [None]
  - ABSCESS RUPTURE [None]
  - BLADDER REPAIR [None]
  - CONDITION AGGRAVATED [None]
  - GENITAL HAEMORRHAGE [None]
  - INFLUENZA LIKE ILLNESS [None]
  - MENORRHAGIA [None]
  - POST PROCEDURAL COMPLICATION [None]
  - POST PROCEDURAL HAEMORRHAGE [None]
  - POSTOPERATIVE INFECTION [None]
  - PROCEDURAL PAIN [None]
